FAERS Safety Report 8584824-5 (Version None)
Quarter: 2012Q2

REPORT INFORMATION
  Report Type: 
  Country: None (occurrence: None)
  Receive Date: 20120423
  Receipt Date: 20091027
  Transmission Date: 20120825
  Serious: Yes (Other)
  Sender: FDA-Public Use
  Company Number: PHEH2009US14611

PATIENT
  Sex: Male

DRUGS (1)
  1. EXJADE [Suspect]
     Dosage: 2125, QD, ORAL
     Route: 048
     Dates: start: 20090908, end: 20091009

REACTIONS (1)
  - RENAL IMPAIRMENT [None]
